FAERS Safety Report 23254742 (Version 1)
Quarter: 2023Q4

REPORT INFORMATION
  Report Type: Other
  Country: JP (occurrence: JP)
  Receive Date: 20231203
  Receipt Date: 20231203
  Transmission Date: 20240110
  Serious: Yes (Hospitalization, Other)
  Sender: FDA-Public Use
  Company Number: JP-DEXPHARM-20232963

PATIENT
  Age: 64 Year
  Sex: Male

DRUGS (8)
  1. ESOMEPRAZOLE [Suspect]
     Active Substance: ESOMEPRAZOLE
  2. REMDESIVIR [Suspect]
     Active Substance: REMDESIVIR
     Indication: Chemotherapy
  3. CARBOPLATIN [Concomitant]
     Active Substance: CARBOPLATIN
  4. DEXAMETHASONE [Suspect]
     Active Substance: DEXAMETHASONE
     Indication: Chemotherapy
  5. ETOPOSIDE [Concomitant]
     Active Substance: ETOPOSIDE
  6. ATEZOLIZUMAB [Concomitant]
     Active Substance: ATEZOLIZUMAB
  7. RASBURICASE [Suspect]
     Active Substance: RASBURICASE
  8. ACETAMINOPHEN [Suspect]
     Active Substance: ACETAMINOPHEN

REACTIONS (1)
  - Neutropenia [Recovering/Resolving]
